FAERS Safety Report 15259633 (Version 1)
Quarter: 2018Q3

REPORT INFORMATION
  Report Type: Spontaneous
  Country: DE (occurrence: DE)
  Receive Date: 20180809
  Receipt Date: 20180809
  Transmission Date: 20181010
  Serious: Yes (Hospitalization)
  Sender: FDA-Public Use
  Company Number: DE-TEVA-2018-DE-936767

PATIENT
  Sex: Female

DRUGS (8)
  1. PANTOPRAZOLE [Suspect]
     Active Substance: PANTOPRAZOLE
     Dosage: 40 MILLIGRAM DAILY;
     Route: 065
  2. CORTISONE [Suspect]
     Active Substance: CORTISONE\HYDROCORTISONE
     Route: 065
  3. MUCOFALK ORANGE [Suspect]
     Active Substance: HERBALS\PLANTAGO OVATA LEAF
     Indication: ABNORMAL FAECES
     Dosage: 15 GRAM DAILY;
     Route: 048
     Dates: start: 2017, end: 20171208
  4. MUCOFALK ORANGE [Suspect]
     Active Substance: HERBALS\PLANTAGO OVATA LEAF
     Dosage: 20 GRAM DAILY;
     Route: 048
     Dates: start: 20171209, end: 20171209
  5. ACETYLSALICYLIC ACID [Suspect]
     Active Substance: ASPIRIN
     Dosage: 100 MILLIGRAM DAILY;
     Route: 065
  6. OSVAREN [Suspect]
     Active Substance: CALCIUM ACETATE\MAGNESIUM CARBONATE
     Route: 065
  7. L?THYROXIN [Suspect]
     Active Substance: LEVOTHYROXINE SODIUM
     Route: 065
  8. NEPHROTRANS [Suspect]
     Active Substance: SODIUM BICARBONATE
     Route: 065

REACTIONS (3)
  - Hyperkalaemia [Recovered/Resolved]
  - Myalgia [Recovered/Resolved]
  - Asthenia [Recovered/Resolved]

NARRATIVE: CASE EVENT DATE: 20171210
